FAERS Safety Report 6538056-2 (Version None)
Quarter: 2010Q1

REPORT INFORMATION
  Report Type: 
  Country: None (occurrence: None)
  Receive Date: 20100114
  Receipt Date: 20100108
  Transmission Date: 20100710
  Serious: Yes (Other)
  Sender: FDA-Public Use
  Company Number: FR-SANOFI-AVENTIS-200911295FR

PATIENT
  Age: 0 Day
  Sex: Male
  Weight: 3.76 kg

DRUGS (4)
  1. LANTUS [Suspect]
     Dosage: DOSE UNIT: 100 IU/ML
     Route: 064
     Dates: start: 20080701, end: 20090401
  2. LOVENOX [Concomitant]
     Route: 064
  3. NOVORAPID [Concomitant]
     Route: 064
  4. LEVOTHYROXINE SODIUM [Concomitant]
     Route: 064

REACTIONS (2)
  - DRUG EXPOSURE DURING PREGNANCY [None]
  - HYPOGLYCAEMIA NEONATAL [None]
